FAERS Safety Report 21892751 (Version 2)
Quarter: 2023Q1

REPORT INFORMATION
  Report Type: Report from Study
  Country: US (occurrence: US)
  Receive Date: 20230120
  Receipt Date: 20230202
  Transmission Date: 20230417
  Serious: Yes (Hospitalization, Other)
  Sender: FDA-Public Use
  Company Number: US-BAYER-2023A002516

PATIENT
  Age: 77 Year
  Sex: Male

DRUGS (2)
  1. STIVARGA [Suspect]
     Active Substance: REGORAFENIB
     Indication: Gastrointestinal stromal tumour
     Dosage: 160 MG, QD
     Route: 048
     Dates: start: 20221221
  2. STIVARGA [Suspect]
     Active Substance: REGORAFENIB
     Indication: Colon cancer

REACTIONS (6)
  - Fall [Recovered/Resolved]
  - Decreased appetite [Recovered/Resolved]
  - Food refusal [Recovered/Resolved]
  - Asthenia [Recovered/Resolved]
  - Transfusion [None]
  - Ocular hyperaemia [None]

NARRATIVE: CASE EVENT DATE: 20221223
